FAERS Safety Report 6082205-X (Version None)
Quarter: 2009Q1

REPORT INFORMATION
  Report Type: 
  Country: None (occurrence: None)
  Receive Date: 20090218
  Receipt Date: 20090213
  Transmission Date: 20090719
  Serious: No
  Sender: FDA-Public Use
  Company Number: B0558427A

PATIENT
  Age: 72 Year
  Sex: Male

DRUGS (5)
  1. SERETIDE [Suspect]
     Indication: ASTHMA
     Dosage: 250MCG TWICE PER DAY
     Route: 055
     Dates: start: 20090119
  2. ONON [Concomitant]
     Route: 048
  3. MUCODYNE [Concomitant]
     Route: 048
  4. BLOPRESS [Concomitant]
     Route: 048
  5. ATELEC [Concomitant]
     Route: 048

REACTIONS (1)
  - HYPOSMIA [None]
